FAERS Safety Report 19074516 (Version 1)
Quarter: 2021Q1

REPORT INFORMATION
  Report Type: Spontaneous
  Country: SE (occurrence: SE)
  Receive Date: 20210330
  Receipt Date: 20210330
  Transmission Date: 20210420
  Serious: Yes (Other)
  Sender: FDA-Public Use
  Company Number: SE-ASTRAZENECA-2021A146771

PATIENT
  Age: 54 Year
  Sex: Female

DRUGS (14)
  1. SERTRALINE [Concomitant]
     Active Substance: SERTRALINE HYDROCHLORIDE
     Route: 065
     Dates: start: 20171110
  2. DUROFERON [Concomitant]
     Active Substance: FERROUS SULFATE
     Dosage: 1.0DF INTERMITTENT
     Route: 065
     Dates: start: 20170412
  3. OMEPRAZOLE. [Concomitant]
     Active Substance: OMEPRAZOLE
  4. FORXIGA [Suspect]
     Active Substance: DAPAGLIFLOZIN
     Indication: DIABETES MELLITUS
     Route: 048
     Dates: start: 202012
  5. DUORESP SPIROMAX [Concomitant]
     Active Substance: BUDESONIDE\FORMOTEROL
     Route: 065
  6. JANUVIA [Concomitant]
     Active Substance: SITAGLIPTIN PHOSPHATE
     Route: 065
     Dates: start: 20200205
  7. BRICANYL [Concomitant]
     Active Substance: TERBUTALINE SULFATE
     Dosage: 1.0DF INTERMITTENT
     Route: 065
     Dates: start: 20170412
  8. ATORVASTATIN [Concomitant]
     Active Substance: ATORVASTATIN
     Dosage: 40.0MG UNKNOWN
     Route: 065
  9. BETOLVEX [Concomitant]
     Route: 065
  10. ATARAX [Concomitant]
     Active Substance: HYDROXYZINE HYDROCHLORIDE
     Dosage: 1.0DF INTERMITTENT
     Route: 065
     Dates: start: 20170412
  11. ALVEDON [Concomitant]
     Active Substance: ACETAMINOPHEN
     Dosage: 500.0MG INTERMITTENT
     Route: 065
     Dates: start: 20180814
  12. LOSARTAN. [Concomitant]
     Active Substance: LOSARTAN
     Route: 065
     Dates: start: 20190815
  13. FUCITHALMIC [Concomitant]
     Active Substance: FUSIDIC ACID
     Route: 065
     Dates: start: 20170225
  14. CALCICHEW?D3 CITRON [Concomitant]
     Route: 065
     Dates: start: 20170630

REACTIONS (2)
  - Pruritus [Recovered/Resolved]
  - Face oedema [Recovered/Resolved]

NARRATIVE: CASE EVENT DATE: 20210102
